FAERS Safety Report 18390488 (Version 5)
Quarter: 2022Q1

REPORT INFORMATION
  Report Type: Report from Study
  Country: US (occurrence: None)
  Receive Date: 20201016
  Receipt Date: 20220205
  Transmission Date: 20220423
  Serious: Yes (Hospitalization, Other)
  Sender: FDA-Public Use
  Company Number: US-ROCHE-2666843

PATIENT
  Age: 73 Year
  Sex: Female
  Weight: 96 kg

DRUGS (5)
  1. OBINUTUZUMAB [Suspect]
     Active Substance: OBINUTUZUMAB
     Indication: Chronic lymphocytic leukaemia
     Dosage: C1D1?LAST DOSE ADMINISTERED PRIOR TO AE 22/JUL/2020?DAYS 1, 2, 8, AND 15 OF CYCLE 1, AND ON DAY 1 OF
     Route: 042
     Dates: start: 20200304
  2. OBINUTUZUMAB [Suspect]
     Active Substance: OBINUTUZUMAB
     Dosage: C1D2?DAYS 1, 2, 8, AND 15 OF CYCLE 1, AND ON DAY 1 OF CYCLES 2-6 ( AS PER PROTOCOL)
     Route: 042
  3. OBINUTUZUMAB [Suspect]
     Active Substance: OBINUTUZUMAB
     Dosage: C1D8 + C1D15, C2-6D1?DAYS 1, 2, 8, AND 15 OF CYCLE 1, AND ON DAY 1 OF CYCLES 2-6 ( AS PER PROTOCOL)
     Route: 042
  4. IBRUTINIB [Suspect]
     Active Substance: IBRUTINIB
     Indication: Chronic lymphocytic leukaemia
     Dosage: FOR 15 CYCLES?MOST RECENT DOSE PRIOR TO ADVERSE EVENT: 11/AUG/2020 ?TOTAL DOSE ADMINISTERED THIS COU
     Route: 048
     Dates: start: 20200304
  5. ELIQUIS [Suspect]
     Active Substance: APIXABAN
     Indication: Cerebrovascular accident prophylaxis
     Route: 065

REACTIONS (5)
  - Alanine aminotransferase increased [Recovered/Resolved]
  - Atrial fibrillation [Recovered/Resolved]
  - Neutrophil count decreased [Recovered/Resolved]
  - Oedema peripheral [Unknown]
  - Haematoma [Unknown]

NARRATIVE: CASE EVENT DATE: 20200812
